FAERS Safety Report 15856759 (Version 2)
Quarter: 2025Q3

REPORT INFORMATION
  Report Type: Spontaneous
  Country: EU (occurrence: EU)
  Receive Date: 20190123
  Receipt Date: 20250911
  Transmission Date: 20251021
  Serious: Yes (Other)
  Sender: AUROBINDO
  Company Number: EU-AUROBINDO-AUR-APL-2019-002264

PATIENT
  Age: 72 Year

DRUGS (3)
  1. DORZOLAMIDE\TIMOLOL [Suspect]
     Active Substance: DORZOLAMIDE\TIMOLOL
     Indication: Glaucoma
     Dosage: 2 UNK, ONCE A DAY, DORZOLAMIDE 2%/TIMOLOL 0.5%, BID
     Route: 061
  2. BRIMONIDINE [Suspect]
     Active Substance: BRIMONIDINE TARTRATE
     Indication: Glaucoma
     Dosage: 4 PERCENT, ONCE A DAY, 2 %, BID
     Route: 061
  3. TRAVOPROST [Suspect]
     Active Substance: TRAVOPROST
     Indication: Glaucoma
     Dosage: 0.00 PERCENT, ONCE A DAY, 0.004 %, QD
     Route: 061

REACTIONS (2)
  - Glaucoma [Unknown]
  - Disease progression [Unknown]
